FAERS Safety Report 13803607 (Version 2)
Quarter: 2017Q3

REPORT INFORMATION
  Report Type: Report from Study
  Country: US (occurrence: US)
  Receive Date: 20170728
  Receipt Date: 20170807
  Transmission Date: 20171127
  Serious: Yes (Hospitalization)
  Sender: FDA-Public Use
  Company Number: US-UNITED THERAPEUTICS-UNT-2017-011062

PATIENT
  Age: 59 Year
  Sex: Male
  Weight: 61.22 kg

DRUGS (10)
  1. TYVASO [Suspect]
     Active Substance: TREPROSTINIL
     Indication: PULMONARY ARTERIAL HYPERTENSION
     Dosage: 72 ?G, QID
     Dates: start: 20160412
  2. OMEPRAZOLE. [Concomitant]
     Active Substance: OMEPRAZOLE
     Indication: GASTROOESOPHAGEAL REFLUX DISEASE
     Dosage: 40 MG, TOTAL DAILY DOSE
     Route: 048
     Dates: start: 201308
  3. SILDENAFIL. [Concomitant]
     Active Substance: SILDENAFIL
     Indication: PULMONARY ARTERIAL HYPERTENSION
     Dosage: 60 MG, TOTAL DAILY DOSE
     Route: 048
     Dates: start: 201512
  4. TRILEPTAL [Concomitant]
     Active Substance: OXCARBAZEPINE
     Indication: DEPRESSION
     Dosage: 300 MG, TOTAL DAILY DOSE
     Route: 048
     Dates: start: 2014
  5. BLINDED PLACEBO [Suspect]
     Active Substance: INVESTIGATIONAL PRODUCT
     Indication: PULMONARY ARTERIAL HYPERTENSION
     Dosage: 30 ?G, QID
     Route: 048
     Dates: start: 20160712
  6. FERROUS SULFATE. [Concomitant]
     Active Substance: FERROUS SULFATE
     Indication: ANAEMIA
     Dosage: 220 MG, TOTAL DAILY DOSE
     Route: 048
     Dates: start: 201608
  7. LOSARTAN. [Concomitant]
     Active Substance: LOSARTAN
     Indication: HYPERTENSION
     Dosage: 25 MG, TOTAL DAILY DOSE
     Route: 048
     Dates: start: 20170616
  8. BLINDED BERAPROST SODIUM [Suspect]
     Active Substance: BERAPROST SODIUM
     Indication: PULMONARY ARTERIAL HYPERTENSION
     Dosage: 30 ?G, QID
     Route: 048
     Dates: start: 20160712
  9. AMLODIPINE [Concomitant]
     Active Substance: AMLODIPINE BESYLATE
     Indication: HYPERTENSION
     Dosage: 5 MG, TOTAL DAILY DOSE
     Route: 048
     Dates: start: 2014
  10. CELLCEPT [Concomitant]
     Active Substance: MYCOPHENOLATE MOFETIL\MYCOPHENOLATE MOFETIL HYDROCHLORIDE
     Indication: SYSTEMIC SCLERODERMA
     Dosage: 1000 MG, TOTAL DAILY DOSE
     Route: 048
     Dates: start: 201309, end: 20170725

REACTIONS (7)
  - Upper respiratory tract infection [Unknown]
  - Dyspnoea exertional [Unknown]
  - Off label use [Unknown]
  - Dyspnoea [Recovered/Resolved]
  - Interstitial lung disease [Unknown]
  - Rhinorrhoea [Unknown]
  - Pulmonary arterial hypertension [Unknown]

NARRATIVE: CASE EVENT DATE: 201701
